FAERS Safety Report 8878848 (Version 1)
Quarter: 2012Q4

REPORT INFORMATION
  Report Type: Report from Study
  Country: FR (occurrence: FR)
  Receive Date: 20121026
  Receipt Date: 20121026
  Transmission Date: 20130627
  Serious: Yes (Hospitalization)
  Sender: FDA-Public Use
  Company Number: FR-ROCHE-1146470

PATIENT
  Age: 50 Year
  Sex: Female

DRUGS (11)
  1. RITUXIMAB [Suspect]
     Indication: MANTLE CELL LYMPHOMA
     Dosage: 610 mg/cycle on D4/ cycle and 1 then D1/ other cycle
     Route: 041
     Dates: start: 20120814, end: 20120913
  2. CISPLATIN [Suspect]
     Indication: MANTLE CELL LYMPHOMA
     Dosage: 163 mg/ cycle on D1
     Route: 065
     Dates: start: 20120814, end: 20120913
  3. CYTARABINE [Concomitant]
     Dosage: 3.25 g/d on D1 and D2/ cycle
     Route: 065
     Dates: start: 20120814, end: 20120914
  4. GRANOCYTE [Concomitant]
     Route: 065
     Dates: start: 20120914
  5. BACTRIM [Concomitant]
     Route: 065
     Dates: start: 20120814, end: 20120920
  6. BACTRIM FORTE [Concomitant]
     Route: 048
     Dates: start: 20120814, end: 20120920
  7. LEDERFOLINE [Concomitant]
     Route: 048
     Dates: start: 20120814, end: 20120920
  8. VALACICLOVIR [Concomitant]
     Route: 048
  9. ZOLPIDEM [Concomitant]
     Route: 048
     Dates: start: 20120814, end: 20120920
  10. ZOLPIDEM [Concomitant]
     Route: 048
     Dates: start: 20120924
  11. CHLORMADINONE [Concomitant]
     Route: 048
     Dates: start: 20120814, end: 20120920

REACTIONS (2)
  - Hyponatraemia [Recovering/Resolving]
  - Bone marrow failure [Unknown]
